FAERS Safety Report 18746819 (Version 1)
Quarter: 2021Q1

REPORT INFORMATION
  Report Type: Spontaneous
  Country: FR (occurrence: FR)
  Receive Date: 20210115
  Receipt Date: 20210115
  Transmission Date: 20210419
  Serious: Yes (Other)
  Sender: FDA-Public Use
  Company Number: FR-PFIZER INC-2021015958

PATIENT
  Age: 56 Year
  Sex: Male
  Weight: 60 kg

DRUGS (3)
  1. METOCLOPRAMIDE. [Suspect]
     Active Substance: METOCLOPRAMIDE
     Indication: VOMITING
     Dosage: UNK
     Route: 048
     Dates: start: 20201016, end: 20201112
  2. DOMPERIDONE [Suspect]
     Active Substance: DOMPERIDONE
     Indication: VOMITING
     Dosage: UNK
     Route: 048
     Dates: start: 20201118, end: 20201119
  3. PREGABALIN. [Suspect]
     Active Substance: PREGABALIN
     Indication: PAIN
     Dosage: UNK
     Route: 048
     Dates: start: 20201105, end: 20201110

REACTIONS (4)
  - Akathisia [Recovered/Resolved]
  - Anxiety [Recovered/Resolved]
  - Somnolence [Recovered/Resolved]
  - Confusional state [Recovered/Resolved]

NARRATIVE: CASE EVENT DATE: 202011
